FAERS Safety Report 7408442-7 (Version None)
Quarter: 2011Q1

REPORT INFORMATION
  Report Type: 
  Country: None (occurrence: None)
  Receive Date: 20110301
  Receipt Date: 20100421
  Transmission Date: 20110831
  Serious: Yes (Disabling, Other)
  Sender: FDA-Public Use
  Company Number: ALA_00757_2010

PATIENT
  Sex: Male

DRUGS (1)
  1. REGLAN [Suspect]
     Indication: GASTROOESOPHAGEAL REFLUX DISEASE
     Dosage: (DF ORAL)
     Route: 048
     Dates: start: 20010101, end: 20090101

REACTIONS (4)
  - INCORRECT DRUG ADMINISTRATION DURATION [None]
  - AKATHISIA [None]
  - TARDIVE DYSKINESIA [None]
  - DYSKINESIA [None]
